FAERS Safety Report 12718199 (Version 1)
Quarter: 2016Q3

REPORT INFORMATION
  Report Type: Spontaneous
  Country: NO (occurrence: NO)
  Receive Date: 20160906
  Receipt Date: 20160906
  Transmission Date: 20161109
  Serious: Yes (Hospitalization, Other)
  Sender: FDA-Public Use
  Company Number: PHHY2016NO118823

PATIENT
  Age: 55 Year
  Sex: Male

DRUGS (13)
  1. KLEXANE [Concomitant]
     Active Substance: ENOXAPARIN
     Indication: DEEP VEIN THROMBOSIS
     Dosage: 60 MG
     Route: 058
  2. FLUROBLASTINE [Suspect]
     Active Substance: FLUOROURACIL
     Dosage: 900 MG
     Route: 042
     Dates: start: 20160704
  3. ONDANSETRON [Concomitant]
     Active Substance: ONDANSETRON
     Indication: PREMEDICATION
     Dosage: 8 MG
  4. EMEND [Concomitant]
     Active Substance: APREPITANT
     Indication: PROPHYLAXIS OF NAUSEA AND VOMITING
     Dosage: 125 MG
     Route: 065
  5. FOLINATE CALCIUM [Suspect]
     Active Substance: LEUCOVORIN CALCIUM
     Dosage: 100 MG
     Route: 042
     Dates: start: 20160704
  6. OXALIPLATIN. [Suspect]
     Active Substance: OXALIPLATIN
     Dosage: 153 MG
     Route: 042
     Dates: start: 20160802
  7. OXALIPLATIN. [Suspect]
     Active Substance: OXALIPLATIN
     Dosage: 153 MG
     Route: 042
     Dates: start: 20160704
  8. FLUROBLASTINE [Suspect]
     Active Substance: FLUOROURACIL
     Dosage: 900 MG
     Route: 042
     Dates: start: 20160802
  9. FOLINATE CALCIUM [Suspect]
     Active Substance: LEUCOVORIN CALCIUM
     Indication: RECTAL CANCER
     Dosage: 100 MG
     Route: 042
     Dates: start: 20160705
  10. FLUROBLASTINE [Suspect]
     Active Substance: FLUOROURACIL
     Indication: RECTAL CANCER
     Dosage: 900 MG
     Route: 042
     Dates: start: 20160705
  11. OXALIPLATIN. [Suspect]
     Active Substance: OXALIPLATIN
     Indication: RECTAL CANCER
     Dosage: 153 MG
     Route: 042
     Dates: start: 20160705
  12. FOLINATE CALCIUM [Suspect]
     Active Substance: LEUCOVORIN CALCIUM
     Dosage: 100 MG
     Route: 042
     Dates: start: 20160802
  13. DEXAMETHASONE. [Concomitant]
     Active Substance: DEXAMETHASONE
     Indication: PREMEDICATION
     Dosage: 16 MG
     Route: 048

REACTIONS (4)
  - Cold sweat [Recovered/Resolved]
  - Restlessness [Unknown]
  - Abdominal pain upper [Recovered/Resolved]
  - Nausea [Recovered/Resolved]

NARRATIVE: CASE EVENT DATE: 20160802
